FAERS Safety Report 10025934 (Version 1)
Quarter: 2014Q1

REPORT INFORMATION
  Report Type: Spontaneous
  Country: US (occurrence: US)
  Receive Date: 20140320
  Receipt Date: 20140320
  Transmission Date: 20141002
  Serious: No
  Sender: FDA-Public Use
  Company Number: US-009507513-1403USA008410

PATIENT
  Age: 18 Year
  Sex: Female
  Weight: 96.15 kg

DRUGS (1)
  1. NEXPLANON [Suspect]
     Dosage: UNK
     Dates: start: 20140317, end: 20140317

REACTIONS (3)
  - Device difficult to use [Not Recovered/Not Resolved]
  - Product quality issue [Unknown]
  - No adverse event [Unknown]
